FAERS Safety Report 9684899 (Version 1)
Quarter: 2013Q4

REPORT INFORMATION
  Report Type: Report from Study
  Country: AU (occurrence: AU)
  Receive Date: 20131113
  Receipt Date: 20131113
  Transmission Date: 20140711
  Serious: Yes (Other)
  Sender: FDA-Public Use
  Company Number: AU-ROCHE-1300142

PATIENT
  Age: 63 Year
  Sex: Female

DRUGS (4)
  1. ACTEMRA [Suspect]
     Indication: RHEUMATOID ARTHRITIS
     Route: 042
     Dates: start: 201303
  2. ASPIRIN [Concomitant]
     Indication: HAEMORRHAGE
     Route: 048
  3. FOLIC ACID [Concomitant]
     Route: 048
  4. PREDNISONE [Concomitant]
     Indication: ANTIINFLAMMATORY THERAPY
     Dosage: ONGOING
     Route: 048

REACTIONS (2)
  - Dizziness [Recovered/Resolved]
  - Extrasystoles [Recovered/Resolved]
